FAERS Safety Report 7931434-6 (Version None)
Quarter: 2011Q4

REPORT INFORMATION
  Report Type: 
  Country: None (occurrence: None)
  Receive Date: 20111121
  Receipt Date: 20111115
  Transmission Date: 20120403
  Serious: Yes (Hospitalization, Other)
  Sender: FDA-Public Use
  Company Number: SE-BRISTOL-MYERS SQUIBB COMPANY-15532799

PATIENT
  Age: 67 Year
  Sex: Male

DRUGS (7)
  1. CRESTOR [Suspect]
  2. EZETIMIBE [Concomitant]
     Dosage: AGAIN THERAPY STARTED ON 20JAN11
     Dates: start: 20101008
  3. CALCIUM ANTAGONIST [Concomitant]
     Dosage: AGAIN THERAPY STARTED ON 20JAN11
     Dates: start: 20101008
  4. ANGIOTENSIN [Concomitant]
     Dosage: ANGIOTENSIN RECEPTOR BLOCKER AGAIN THERAPY STARTED ON 20JAN11
     Dates: start: 20101008
  5. BLINDED: PLACEBO [Suspect]
     Indication: TYPE 2 DIABETES MELLITUS
     Dates: start: 20101009
  6. ASPIRIN [Concomitant]
     Dosage: AGAIN THERAPY STARTED ON 20JAN11
     Dates: start: 20101008
  7. BLINDED: SAXAGLIPTIN [Suspect]
     Indication: TYPE 2 DIABETES MELLITUS
     Dates: start: 20101009

REACTIONS (2)
  - BILIARY POLYP [None]
  - PANCREATITIS [None]
